FAERS Safety Report 23576148 (Version 2)
Quarter: 2024Q2

REPORT INFORMATION
  Report Type: Spontaneous
  Country: BG (occurrence: None)
  Receive Date: 20240228
  Receipt Date: 20240408
  Transmission Date: 20240715
  Serious: Yes (Other)
  Sender: FDA-Public Use
  Company Number: 2024A044996

PATIENT
  Age: 48 Year
  Sex: Male

DRUGS (3)
  1. IMFINZI [Suspect]
     Active Substance: DURVALUMAB
     Indication: Cholangiocarcinoma
     Route: 042
  2. GEMCITABINE [Concomitant]
     Active Substance: GEMCITABINE
  3. CISPLATIN [Concomitant]
     Active Substance: CISPLATIN

REACTIONS (2)
  - Malignant neoplasm progression [Unknown]
  - Off label use [Unknown]
